FAERS Safety Report 4432820-1 (Version None)
Quarter: 2004Q3

REPORT INFORMATION
  Report Type: 
  Country: None (occurrence: None)
  Receive Date: 20040823
  Receipt Date: 20040813
  Transmission Date: 20050211
  Serious: Yes (Hospitalization)
  Sender: FDA-Public Use
  Company Number: 2004228445FI

PATIENT
  Sex: Female

DRUGS (4)
  1. SULFASALAZINE [Suspect]
     Indication: ANKYLOSING SPONDYLITIS
     Dosage: 1000 MG, BID, ORAL
     Route: 048
     Dates: start: 20040109, end: 20040205
  2. PROGYNOVA [Concomitant]
  3. LESCOL [Concomitant]
  4. PANACOD [Concomitant]

REACTIONS (1)
  - INTERSTITIAL LUNG DISEASE [None]
